FAERS Safety Report 8480212-0 (Version None)
Quarter: 2012Q2

REPORT INFORMATION
  Report Type: 
  Country: None (occurrence: None)
  Receive Date: 20120629
  Receipt Date: 20120620
  Transmission Date: 20120825
  Serious: Yes (Other)
  Sender: FDA-Public Use
  Company Number: US-ASTRAZENECA-2012SE28378

PATIENT
  Age: 79 Year
  Sex: Female
  Weight: 117 kg

DRUGS (5)
  1. SYMBICORT [Suspect]
     Indication: EMPHYSEMA
     Route: 055
  2. SPIRIVA [Concomitant]
  3. SYMBICORT [Suspect]
     Indication: CHRONIC OBSTRUCTIVE PULMONARY DISEASE
     Route: 055
  4. OTHER MEDICATIONS [Concomitant]
  5. TOPROL-XL [Suspect]
     Route: 048

REACTIONS (7)
  - CHRONIC OBSTRUCTIVE PULMONARY DISEASE [None]
  - BRONCHITIS CHRONIC [None]
  - SPUTUM RETENTION [None]
  - PNEUMONIA [None]
  - DRUG INEFFECTIVE [None]
  - DYSPNOEA [None]
  - EMPHYSEMA [None]
